FAERS Safety Report 5139571-9 (Version None)
Quarter: 2006Q4

REPORT INFORMATION
  Report Type: 
  Country: None (occurrence: None)
  Receive Date: 20061024
  Receipt Date: 20061013
  Transmission Date: 20070319
  Serious: Yes (Hospitalization)
  Sender: FDA-Public Use
  Company Number: 2006AL003167

PATIENT
  Age: 16 Year
  Sex: Female

DRUGS (1)
  1. PROPYLTHIOURACIL [Suspect]
     Indication: BASEDOW'S DISEASE
     Dosage: 200 MG; QD; PO
     Route: 048

REACTIONS (21)
  - ABDOMINAL PAIN [None]
  - ALBUMIN URINE PRESENT [None]
  - ANTINEUTROPHIL CYTOPLASMIC ANTIBODY POSITIVE [None]
  - BIOPSY KIDNEY ABNORMAL [None]
  - BLOOD ALBUMIN DECREASED [None]
  - BLOOD IMMUNOGLOBULIN A INCREASED [None]
  - BLOOD URIC ACID INCREASED [None]
  - DEHYDRATION [None]
  - HAEMATOCHEZIA [None]
  - HAEMATURIA [None]
  - HEART RATE INCREASED [None]
  - HENOCH-SCHONLEIN PURPURA [None]
  - INTENTIONAL OVERDOSE [None]
  - LEUKOCYTOCLASTIC VASCULITIS [None]
  - NAUSEA [None]
  - PROTEIN TOTAL DECREASED [None]
  - PROTEINURIA [None]
  - URINE KETONE BODY PRESENT [None]
  - URINE PROTEIN/CREATININE RATIO INCREASED [None]
  - VASCULITIS GASTROINTESTINAL [None]
  - VOMITING [None]
